FAERS Safety Report 5422761-5 (Version None)
Quarter: 2007Q3

REPORT INFORMATION
  Report Type: 
  Country: None (occurrence: None)
  Receive Date: 20070822
  Receipt Date: 20070424
  Transmission Date: 20080115
  Serious: No
  Sender: FDA-Public Use
  Company Number: US-BOEHRINGER INGELHEIM PHARMACEUTICALS, INC.-2006-BP-14099BP

PATIENT
  Sex: Male

DRUGS (20)
  1. MIRAPEX [Suspect]
     Indication: PARKINSON'S DISEASE
     Route: 048
     Dates: start: 20020130, end: 20041201
  2. SELEGILENE [Concomitant]
     Route: 048
     Dates: start: 20060101
  3. CARBIDOPA AND LEVODOPA [Concomitant]
     Dates: start: 20060201, end: 20070101
  4. AMANTADINE HCL [Concomitant]
     Dates: start: 20050101
  5. STALEVO 100 [Concomitant]
     Dates: start: 20061201
  6. ZELAPAR [Concomitant]
     Dates: start: 20070101
  7. COMTAN [Concomitant]
     Dates: start: 20060401, end: 20070101
  8. WELLBUTRIN [Concomitant]
     Indication: DEPRESSION
     Dates: end: 20060101
  9. VIAGRA [Concomitant]
  10. IBUPROFEN TABLETS [Concomitant]
     Dates: start: 19960101, end: 20060101
  11. MIRALAX [Concomitant]
     Dates: start: 20020901
  12. PAXIL [Concomitant]
     Indication: DEPRESSION
     Dates: start: 20020101
  13. TEMAZEPAM [Concomitant]
     Dates: start: 20020101
  14. VITAMIN B-12 [Concomitant]
  15. MAGNESIUM SULFATE [Concomitant]
  16. PS100 PHOSPHATIDYLSERINE [Concomitant]
  17. THIAMINE [Concomitant]
  18. VITAMIN CAP [Concomitant]
  19. VITAMIN E [Concomitant]
  20. ASCORBIC ACID [Concomitant]

REACTIONS (8)
  - ANXIETY [None]
  - DEPRESSION [None]
  - ECONOMIC PROBLEM [None]
  - HYPERPHAGIA [None]
  - HYPERSEXUALITY [None]
  - INJURY [None]
  - PATHOLOGICAL GAMBLING [None]
  - STRESS [None]
